FAERS Safety Report 8078142-1 (Version None)
Quarter: 2012Q1

REPORT INFORMATION
  Report Type: 
  Country: None (occurrence: None)
  Receive Date: 20120127
  Receipt Date: 20110131
  Transmission Date: 20120608
  Serious: No
  Sender: FDA-Public Use
  Company Number: US-ABBOTT-10P-163-0687806-00

PATIENT
  Sex: Female
  Weight: 97.61 kg

DRUGS (11)
  1. HYDROCODONE [Concomitant]
     Indication: PAIN
  2. DEXILANT [Concomitant]
     Indication: DYSPEPSIA
     Route: 048
  3. VITAMIN D2 [Concomitant]
     Indication: PRODUCT USED FOR UNKNOWN INDICATION
     Route: 048
  4. IRON SUPPLEMENT [Concomitant]
     Indication: MINERAL SUPPLEMENTATION
     Route: 048
  5. UNKNOWN BLOOD THINNER [Concomitant]
     Indication: POSTOPERATIVE THROMBOSIS
     Dates: start: 20110126, end: 20110128
  6. HUMIRA [Suspect]
     Indication: PSORIATIC ARTHROPATHY
     Dates: start: 20100901, end: 20110109
  7. MECLOFENAMATE [Concomitant]
     Indication: ARTHRALGIA
     Route: 048
  8. LORAZEPAM [Concomitant]
     Indication: INSOMNIA
     Dosage: EVERY NIGHT
  9. PROCHLORPERAZINE [Concomitant]
     Indication: NAUSEA
     Dates: start: 20110131
  10. OMEPRAZOLE [Concomitant]
     Indication: DYSPEPSIA
     Dates: start: 20110129
  11. HYDROMORPHONE HCL [Concomitant]
     Indication: PAIN
     Dates: start: 20110128, end: 20110128

REACTIONS (4)
  - SKIN DISCOLOURATION [None]
  - RASH MACULAR [None]
  - CONTUSION [None]
  - RHEUMATOID ARTHRITIS [None]
